FAERS Safety Report 16893107 (Version 1)
Quarter: 2019Q4

REPORT INFORMATION
  Report Type: Report from Study
  Country: None (occurrence: CA)
  Receive Date: 20191008
  Receipt Date: 20191008
  Transmission Date: 20200122
  Serious: Yes (Other)
  Sender: FDA-Public Use
  Company Number: CA-ABBVIE-19K-028-2951627-00

PATIENT
  Sex: Male

DRUGS (1)
  1. HUMIRA [Suspect]
     Active Substance: ADALIMUMAB
     Indication: CROHN^S DISEASE
     Route: 058

REACTIONS (6)
  - Intestinal stenosis [Unknown]
  - Abscess [Unknown]
  - Gastrointestinal scarring [Unknown]
  - Stoma creation [Unknown]
  - Intestinal obstruction [Unknown]
  - Fistula discharge [Unknown]
